FAERS Safety Report 24400396 (Version 1)
Quarter: 2024Q4

REPORT INFORMATION
  Report Type: Spontaneous
  Country: AT (occurrence: AT)
  Receive Date: 20241005
  Receipt Date: 20241005
  Transmission Date: 20250115
  Serious: Yes (Hospitalization)
  Sender: AMGEN
  Company Number: AT-AMGEN-AUTSP2024193929

PATIENT
  Age: 51 Year
  Sex: Male

DRUGS (5)
  1. LUMAKRAS [Suspect]
     Active Substance: SOTORASIB
     Indication: Bronchial carcinoma
     Dosage: UNK
     Route: 065
  2. LUMAKRAS [Suspect]
     Active Substance: SOTORASIB
     Indication: K-ras gene mutation
  3. LUMAKRAS [Suspect]
     Active Substance: SOTORASIB
     Indication: Metastases to central nervous system
  4. LUMAKRAS [Suspect]
     Active Substance: SOTORASIB
     Indication: Metastases to eye
  5. LUMAKRAS [Suspect]
     Active Substance: SOTORASIB
     Indication: Metastases to bone

REACTIONS (11)
  - Restlessness [Unknown]
  - Insomnia [Unknown]
  - Dyspepsia [Unknown]
  - Pallor [Unknown]
  - Asthenia [Unknown]
  - Myalgia [Unknown]
  - Arthralgia [Unknown]
  - Diarrhoea [Unknown]
  - Fatigue [Unknown]
  - Haemoglobin decreased [Unknown]
  - Red blood cell count decreased [Unknown]
